FAERS Safety Report 24262850 (Version 1)
Quarter: 2024Q3

REPORT INFORMATION
  Report Type: Spontaneous
  Country: US (occurrence: US)
  Receive Date: 20240829
  Receipt Date: 20240829
  Transmission Date: 20241017
  Serious: Yes (Death, Other)
  Sender: INCYTE
  Company Number: US-INCYTE CORPORATION-2024IN009010

PATIENT

DRUGS (1)
  1. MONJUVI [Suspect]
     Active Substance: TAFASITAMAB-CXIX
     Dosage: 200 MILLIGRAM
     Route: 065
     Dates: start: 20240422

REACTIONS (2)
  - Neoplasm malignant [Fatal]
  - Disease progression [Fatal]
